FAERS Safety Report 13694073 (Version 2)
Quarter: 2020Q3

REPORT INFORMATION
  Report Type: Spontaneous
  Country: US (occurrence: US)
  Receive Date: 20170627
  Receipt Date: 20200708
  Transmission Date: 20201102
  Serious: No
  Sender: FDA-Public Use
  Company Number: US-ELI_LILLY_AND_COMPANY-US201706008381

PATIENT
  Age: 70 Year
  Sex: Female

DRUGS (4)
  1. LEVEMIR [Concomitant]
     Active Substance: INSULIN DETEMIR
     Dosage: 15 U, EACH EVENING
  2. TRULICITY [Suspect]
     Active Substance: DULAGLUTIDE
     Indication: TYPE 2 DIABETES MELLITUS
     Dosage: 0.75 MG, UNKNOWN
     Route: 058
     Dates: start: 2016
  3. TRULICITY [Suspect]
     Active Substance: DULAGLUTIDE
     Dosage: 0.75 MG, UNKNOWN
     Route: 058
     Dates: start: 2016
  4. TRULICITY [Suspect]
     Active Substance: DULAGLUTIDE
     Dosage: UNK UNK, UNKNOWN
     Route: 058

REACTIONS (10)
  - Neck injury [Unknown]
  - Back disorder [Unknown]
  - Pain [Unknown]
  - Feeling abnormal [Unknown]
  - Musculoskeletal discomfort [Unknown]
  - Asthenia [Not Recovered/Not Resolved]
  - Blood glucose decreased [Unknown]
  - Exercise tolerance decreased [Unknown]
  - Heart rate decreased [Unknown]
  - Road traffic accident [Unknown]

NARRATIVE: CASE EVENT DATE: 201705
